FAERS Safety Report 5610973-7 (Version None)
Quarter: 2008Q1

REPORT INFORMATION
  Report Type: 
  Country: None (occurrence: None)
  Receive Date: 20080201
  Receipt Date: 20080131
  Transmission Date: 20080703
  Serious: Yes (Other)
  Sender: FDA-Public Use
  Company Number: A0699976A

PATIENT
  Weight: 81.4 kg

DRUGS (1)
  1. ALLI [Suspect]
     Indication: WEIGHT CONTROL
     Dates: start: 20071209

REACTIONS (11)
  - ABDOMINAL DISTENSION [None]
  - DECREASED APPETITE [None]
  - FLATULENCE [None]
  - FRUSTRATION [None]
  - GASTROENTERITIS VIRAL [None]
  - GASTROINTESTINAL DISORDER [None]
  - HYPERSOMNIA [None]
  - MALAISE [None]
  - RECTAL DISCHARGE [None]
  - VOMITING [None]
  - WEIGHT FLUCTUATION [None]
